FAERS Safety Report 7002050-8 (Version None)
Quarter: 2010Q3

REPORT INFORMATION
  Report Type: 
  Country: None (occurrence: None)
  Receive Date: 20100917
  Receipt Date: 20100917
  Transmission Date: 20110219
  Serious: Yes (Other)
  Sender: FDA-Public Use
  Company Number: None

PATIENT
  Age: 46 Year
  Sex: Female
  Weight: 45.3597 kg

DRUGS (1)
  1. AMPYRA [Suspect]
     Indication: GAIT DISTURBANCE
     Dosage: 10MG EVERY 12 HRS BY MOUTH  ONLY ONCE
     Route: 048
     Dates: start: 20100810

REACTIONS (2)
  - COORDINATION ABNORMAL [None]
  - FALL [None]
